FAERS Safety Report 5581440-4 (Version None)
Quarter: 2007Q4

REPORT INFORMATION
  Report Type: 
  Country: None (occurrence: None)
  Receive Date: 20071231
  Receipt Date: 20071231
  Transmission Date: 20080405
  Serious: No
  Sender: FDA-Public Use
  Company Number: None

PATIENT
  Age: 88 Year
  Sex: Male
  Weight: 68.0396 kg

DRUGS (1)
  1. FAMICLOVIR 500MG CVS [Suspect]
     Indication: HERPES ZOSTER
     Dosage: 500 MG  THRDE TIMES ER DAY PO
     Route: 048
     Dates: start: 20071121, end: 20071128

REACTIONS (1)
  - CARDIAC FIBRILLATION [None]
